FAERS Safety Report 9423603 (Version 2)
Quarter: 2013Q3

REPORT INFORMATION
  Report Type: Spontaneous
  Country: NL (occurrence: NL)
  Receive Date: 20130726
  Receipt Date: 20130802
  Transmission Date: 20140515
  Serious: Yes (Hospitalization)
  Sender: FDA-Public Use
  Company Number: NL-MERCK-1307NLD011969

PATIENT
  Age: 66 Year
  Sex: Male
  Weight: 92 kg

DRUGS (6)
  1. TIMOPTOL XE [Suspect]
     Indication: GLAUCOMA
     Dosage: ONE DROP IN BOTH EYES, BID
     Route: 047
     Dates: start: 20130504, end: 20130604
  2. IRBESARTAN [Concomitant]
     Dosage: 150 MG, QD
     Dates: start: 20121010
  3. DIAMOX [Concomitant]
     Dosage: 62.5 MG, QD
     Dates: start: 20000216
  4. FUROSEMIDE [Concomitant]
     Dosage: 40 MG, QM
     Dates: start: 19980310
  5. AVASTIN (BEVACIZUMAB) [Concomitant]
     Dosage: 1 DF, 3 TIMES PER 6 WEEKS
     Route: 031
     Dates: start: 20121008
  6. PRAVASTATIN SODIUM [Concomitant]
     Dosage: 20 MG, QD
     Dates: start: 19961025

REACTIONS (1)
  - Hypoglycaemia [Recovered/Resolved]
